FAERS Safety Report 8428295-8 (Version None)
Quarter: 2012Q2

REPORT INFORMATION
  Report Type: 
  Country: None (occurrence: None)
  Receive Date: 20120611
  Receipt Date: 20120606
  Transmission Date: 20120825
  Serious: Yes (Hospitalization)
  Sender: FDA-Public Use
  Company Number: FR-MERCK-1206FRA00020

PATIENT
  Age: 45 Year
  Sex: Male

DRUGS (9)
  1. IFOSFAMIDE [Suspect]
     Indication: EPITHELIOID SARCOMA METASTATIC
     Route: 042
     Dates: start: 20120306, end: 20120308
  2. IFOSFAMIDE [Suspect]
     Route: 042
     Dates: start: 20120405, end: 20120407
  3. EMEND [Suspect]
     Route: 048
     Dates: start: 20120306, end: 20120308
  4. METOCLOPRAMIDE HYDROCHLORIDE [Concomitant]
     Route: 042
     Dates: start: 20120306, end: 20120308
  5. METOCLOPRAMIDE HYDROCHLORIDE [Concomitant]
     Route: 042
     Dates: start: 20120405, end: 20120407
  6. EMEND [Suspect]
     Indication: PREMEDICATION
     Route: 048
     Dates: start: 20120405, end: 20120407
  7. METHYLPREDNISOLONE SODIUM SUCCINATE [Concomitant]
     Route: 042
     Dates: start: 20120405, end: 20120407
  8. MESNA [Concomitant]
     Route: 042
     Dates: start: 20120405, end: 20120407
  9. METHYLPREDNISOLONE SODIUM SUCCINATE [Concomitant]
     Route: 042
     Dates: start: 20120306, end: 20120308

REACTIONS (2)
  - DRUG INTERACTION [None]
  - ENCEPHALOPATHY [None]
